FAERS Safety Report 12069119 (Version 3)
Quarter: 2016Q4

REPORT INFORMATION
  Report Type: Spontaneous
  Country: PT (occurrence: PT)
  Receive Date: 20160211
  Receipt Date: 20161205
  Transmission Date: 20170206
  Serious: Yes (Hospitalization, Other)
  Sender: FDA-Public Use
  Company Number: PT-AUROBINDO-AUR-APL-2016-01097

PATIENT

DRUGS (7)
  1. CARBAMAZEPINE. [Suspect]
     Active Substance: CARBAMAZEPINE
     Indication: PSYCHOTIC DISORDER
     Dosage: 400 MG, DAILY
     Route: 065
  2. BIPERIDEN [Concomitant]
     Active Substance: BIPERIDEN
  3. MELPERONE [Suspect]
     Active Substance: MELPERONE
     Indication: PSYCHOTIC DISORDER
     Dosage: 25 MG, DAILY
     Route: 065
  4. BIPERIDEN [Concomitant]
     Active Substance: BIPERIDEN
  5. OLANZAPINE. [Suspect]
     Active Substance: OLANZAPINE
     Indication: PSYCHOTIC DISORDER
     Dosage: 15 MG, DAILY
     Route: 065
  6. OLANZAPINE. [Suspect]
     Active Substance: OLANZAPINE
  7. BIPERIDEN [Concomitant]
     Active Substance: BIPERIDEN
     Indication: PRODUCT USED FOR UNKNOWN INDICATION
     Dosage: 4 MG, DAILY
     Route: 065

REACTIONS (10)
  - Rectal tenesmus [Recovered/Resolved]
  - Proctalgia [Recovered/Resolved]
  - Constipation [Recovered/Resolved]
  - Colitis ischaemic [Recovered/Resolved]
  - Condition aggravated [Recovered/Resolved]
  - Inflammatory bowel disease [Recovered/Resolved]
  - Abdominal pain [Recovered/Resolved]
  - Pyrexia [Recovered/Resolved]
  - Secretion discharge [Recovered/Resolved]
  - Gastrointestinal necrosis [Unknown]
